FAERS Safety Report 7937222-9 (Version None)
Quarter: 2011Q4

REPORT INFORMATION
  Report Type: 
  Country: None (occurrence: None)
  Receive Date: 20111123
  Receipt Date: 20111114
  Transmission Date: 20120403
  Serious: Yes (Hospitalization)
  Sender: FDA-Public Use
  Company Number: JP-GLAXOSMITHKLINE-B0686403A

PATIENT
  Sex: Male

DRUGS (6)
  1. ERYTHROMYCIN [Suspect]
     Indication: ASTHMA
     Dosage: 200MG PER DAY
     Route: 048
     Dates: start: 20090301
  2. ONON [Suspect]
     Indication: ASTHMA
     Dosage: 360MG PER DAY
     Route: 048
     Dates: start: 20081201
  3. IPD [Suspect]
     Indication: ASTHMA
     Dosage: 100MG PER DAY
     Route: 048
     Dates: start: 20090301, end: 20100801
  4. FAMOTIDINE [Suspect]
     Indication: ASTHMA
     Dosage: 17MG PER DAY
     Route: 048
     Dates: start: 20090101, end: 20100501
  5. FLUTICASONE PROPIONATE/SALMETEROL [Suspect]
     Indication: ASTHMA
     Dosage: 100MG PER DAY
     Route: 055
     Dates: start: 20090408
  6. FLUTICASONE PROPIONATE [Suspect]
     Indication: ASTHMA
     Dosage: 400MCG PER DAY
     Route: 055
     Dates: start: 20081201, end: 20100830

REACTIONS (3)
  - HYPOGLYCAEMIA [None]
  - ACTH STIMULATION TEST ABNORMAL [None]
  - ADRENAL INSUFFICIENCY [None]
